FAERS Safety Report 4513891-0 (Version None)
Quarter: 2004Q4

REPORT INFORMATION
  Report Type: 
  Country: None (occurrence: None)
  Receive Date: 20041130
  Receipt Date: 20040921
  Transmission Date: 20050328
  Serious: No
  Sender: FDA-Public Use
  Company Number: US-GLAXOSMITHKLINE-A0526800A

PATIENT
  Age: 28 Year
  Sex: Female

DRUGS (1)
  1. WELLBUTRIN XL [Suspect]
     Indication: ANXIETY
     Dosage: 150MG PER DAY
     Route: 048

REACTIONS (6)
  - ABDOMINAL DISTENSION [None]
  - ARTHRALGIA [None]
  - CONSTIPATION [None]
  - DIZZINESS [None]
  - FLATULENCE [None]
  - SENSATION OF PRESSURE [None]
